FAERS Safety Report 8464741 (Version 5)
Quarter: 2013Q1

REPORT INFORMATION
  Report Type: Spontaneous
  Country: US (occurrence: None)
  Receive Date: 20120308
  Receipt Date: 20121113
  Transmission Date: 20140127
  Serious: Yes (Hospitalization, Other)
  Sender: FDA-Public Use
  Company Number: 2012031427

PATIENT
  Sex: Female
  Weight: 113.4 kg

DRUGS (17)
  1. BERINERT [Suspect]
     Indication: HEREDITARY ANGIOEDEMA
     Dosage: AS REQUIRED
     Route: 042
  2. CINRYZE [Suspect]
     Indication: HEREDITARY ANGIOEDEMA
     Dosage: EVERY 3 DAYS
     Route: 042
     Dates: start: 20120103
  3. CINRYZE [Suspect]
     Indication: HEREDITARY ANGIOEDEMA
     Dosage: EVERY 3 DAYS
     Route: 042
     Dates: start: 20120103
  4. NORVASC (AMLODIPINE) [Concomitant]
  5. MIRAPEX (PRAMIPEXOLE DIHYDROCHLORIDE) [Concomitant]
  6. BUMEX (BUMETANIDE) [Concomitant]
  7. BENADRYL (DIPHENHYDRAMINE HYDROCHLORIDE) [Concomitant]
  8. K-CHLOR (POTASSIUM CHLORIDE) [Concomitant]
  9. RANEXA (RANOLAZINE) [Concomitant]
  10. SINGULAIR [Concomitant]
  11. ZANTAC (RANITIDINE HYDROCHLORIDE) [Concomitant]
  12. ZYRTEC (CETIRIZINE HYDROCHLORIDE) [Concomitant]
  13. ZOFRAN (ONDANSETRON) [Concomitant]
  14. ATENOLOL (ATENOLOL) [Concomitant]
  15. TOPAMAX (TOPIRAMATE) [Concomitant]
  16. CARDIZEM (DILTIAZEM) [Concomitant]
  17. COUMADIN (WARFARIN SODIUM) [Concomitant]

REACTIONS (29)
  - Headache [None]
  - Dizziness [None]
  - Disorientation [None]
  - Incontinence [None]
  - Pain [None]
  - Swelling [None]
  - Fall [None]
  - Loss of consciousness [None]
  - Feeling abnormal [None]
  - Tremor [None]
  - Musculoskeletal disorder [None]
  - Chest pain [None]
  - Yawning [None]
  - Dysphagia [None]
  - Sinus headache [None]
  - Infusion related reaction [None]
  - Dysphonia [None]
  - Hereditary angioedema [None]
  - Disease recurrence [None]
  - Convulsion [None]
  - Asthenia [None]
  - Tracheostomy malfunction [None]
  - Chest pain [None]
  - Dyspnoea [None]
  - Chest discomfort [None]
  - Scar [None]
  - Adhesion [None]
  - Sepsis [None]
  - Thrombosis [None]
